FAERS Safety Report 20222168 (Version 1)
Quarter: 2021Q4

REPORT INFORMATION
  Report Type: Spontaneous
  Country: CH (occurrence: None)
  Receive Date: 20211223
  Receipt Date: 20211223
  Transmission Date: 20220303
  Serious: Yes (Other)
  Sender: FDA-Public Use
  Company Number: CH-Covis Pharma GmbH-2021COV25017

PATIENT
  Age: 81 Year
  Sex: Female

DRUGS (1)
  1. RILUTEK [Suspect]
     Active Substance: RILUZOLE
     Indication: Amyotrophic lateral sclerosis
     Route: 048
     Dates: start: 202103

REACTIONS (8)
  - Interstitial lung disease [Recovered/Resolved]
  - Weight decreased [Recovered/Resolved]
  - Hypokinesia [Recovered/Resolved]
  - Gait disturbance [Recovered/Resolved]
  - Monoparesis [Recovered/Resolved]
  - Dyspnoea exertional [Recovered/Resolved]
  - Orthopnoea [Recovered/Resolved]
  - Speech disorder [Recovered/Resolved]

NARRATIVE: CASE EVENT DATE: 20210501
